FAERS Safety Report 22134404 (Version 1)
Quarter: 2023Q1

REPORT INFORMATION
  Report Type: Spontaneous
  Country: FR (occurrence: FR)
  Receive Date: 20230324
  Receipt Date: 20230324
  Transmission Date: 20230418
  Serious: Yes (Hospitalization, Other)
  Sender: FDA-Public Use
  Company Number: FR-AFSSAPS-MP2023000613

PATIENT
  Age: 1 Year
  Sex: Female
  Weight: 10.84 kg

DRUGS (11)
  1. MONTELUKAST [Suspect]
     Active Substance: MONTELUKAST SODIUM
     Indication: Childhood asthma
     Dosage: 4 MILLIGRAM, ONCE A DAY
     Route: 048
     Dates: start: 20230303
  2. MONTELUKAST [Suspect]
     Active Substance: MONTELUKAST SODIUM
     Dosage: 4 MILLIGRAM, ONCE A DAY
     Route: 048
     Dates: start: 20230106, end: 20230228
  3. CARBAGLU [Suspect]
     Active Substance: CARGLUMIC ACID
     Indication: Hyperammonaemia
     Dosage: 300 MILLIGRAM
     Route: 048
     Dates: start: 20230227, end: 20230227
  4. CARBAGLU [Suspect]
     Active Substance: CARGLUMIC ACID
     Dosage: 200 MILLIGRAM
     Route: 048
     Dates: start: 20230228, end: 20230228
  5. MEDIUM-CHAIN TRIGLYCERIDES\SOYBEAN OIL [Suspect]
     Active Substance: MEDIUM-CHAIN TRIGLYCERIDES\SOYBEAN OIL
     Indication: Hyperglycinaemia
     Dosage: 102.14 MILLILITER, ONCE A DAY
     Route: 042
     Dates: start: 20230226, end: 20230227
  6. BUDESONIDE [Concomitant]
     Active Substance: BUDESONIDE
     Indication: Childhood asthma
     Dosage: 1 MILLIGRAM, TWO TIMES A DAY
  7. IPRATROPIUM BROMIDE [Concomitant]
     Active Substance: IPRATROPIUM BROMIDE
     Indication: Childhood asthma
     Dosage: 1 MILLIGRAM, TWO TIMES A DAY
  8. LEVOCARNITINE [Concomitant]
     Active Substance: LEVOCARNITINE
     Indication: Hyperglycinaemia
     Dosage: 400 MILLIGRAM, TWO TIMES A DAY
     Route: 048
  9. LEVOTHYROXINE SODIUM [Concomitant]
     Active Substance: LEVOTHYROXINE SODIUM
     Indication: Hypothyroidism
     Dosage: 5 GTT DROPS, ONCE A DAY
     Route: 048
  10. ALBUTEROL [Concomitant]
     Active Substance: ALBUTEROL
     Indication: Childhood asthma
     Dosage: 2.5 MILLIGRAM
  11. CHOLECALCIFEROL [Concomitant]
     Active Substance: CHOLECALCIFEROL
     Indication: Vitamin supplementation
     Dosage: 3 GTT DROPS, ONCE A DAY
     Route: 048

REACTIONS (1)
  - Hepatic cytolysis [Recovering/Resolving]

NARRATIVE: CASE EVENT DATE: 20230228
